FAERS Safety Report 25085199 (Version 1)
Quarter: 2025Q1

REPORT INFORMATION
  Report Type: Report from Study
  Country: CA (occurrence: CA)
  Receive Date: 20250317
  Receipt Date: 20250317
  Transmission Date: 20250408
  Serious: Yes (Hospitalization, Other)
  Sender: TAKEDA
  Company Number: CA-TAKEDA-2025TUS026581

PATIENT
  Age: 71 Year
  Sex: Female

DRUGS (22)
  1. VEDOLIZUMAB [Suspect]
     Active Substance: VEDOLIZUMAB
     Indication: Crohn^s disease
  2. PENTASA [Concomitant]
     Active Substance: MESALAMINE
  3. OMEPRAZOLE [Concomitant]
     Active Substance: OMEPRAZOLE
  4. VITAMIN D [Concomitant]
     Active Substance: VITAMIN D NOS
  5. METOPROLOL [Concomitant]
     Active Substance: METOPROLOL
  6. ASPIRIN [Concomitant]
     Active Substance: ASPIRIN
  7. CALCIUM [Concomitant]
     Active Substance: CALCIUM
  8. ROSUVASTATIN [Concomitant]
     Active Substance: ROSUVASTATIN
  9. CYCLOBENZAPRINE [Concomitant]
     Active Substance: CYCLOBENZAPRINE
  10. Pms ismn [Concomitant]
  11. ATROVENT [Concomitant]
     Active Substance: IPRATROPIUM BROMIDE
  12. FLOVENT [Concomitant]
     Active Substance: FLUTICASONE PROPIONATE
  13. OXAZEPAM [Concomitant]
     Active Substance: OXAZEPAM
  14. ALBUTEROL [Concomitant]
     Active Substance: ALBUTEROL
  15. ONDANSETRON [Concomitant]
     Active Substance: ONDANSETRON
  16. DEXAMETHASONE [Concomitant]
     Active Substance: DEXAMETHASONE
  17. ETOPOSIDE [Concomitant]
     Active Substance: ETOPOSIDE
  18. MAGNESIUM [Concomitant]
     Active Substance: MAGNESIUM
  19. DICLOFENAC DIETHYLAMINE [Concomitant]
     Active Substance: DICLOFENAC DIETHYLAMINE
     Route: 061
  20. SOLIFENACIN [Concomitant]
     Active Substance: SOLIFENACIN
  21. SUCRALFATE [Concomitant]
     Active Substance: SUCRALFATE
  22. METOCLOPRAMIDE [Concomitant]
     Active Substance: METOCLOPRAMIDE

REACTIONS (2)
  - Pulmonary oedema [Recovered/Resolved]
  - Urinary tract infection [Recovered/Resolved]

NARRATIVE: CASE EVENT DATE: 20250218
